FAERS Safety Report 20688755 (Version 1)
Quarter: 2022Q2

REPORT INFORMATION
  Report Type: Spontaneous
  Country: US (occurrence: US)
  Receive Date: 20220408
  Receipt Date: 20220408
  Transmission Date: 20220720
  Serious: Yes (Hospitalization, Other)
  Sender: FDA-Public Use
  Company Number: US-BRISTOL-MYERS SQUIBB COMPANY-2022-014824

PATIENT
  Age: 56 Year
  Sex: Female
  Weight: 70.3 kg

DRUGS (2)
  1. NIVOLUMAB [Suspect]
     Active Substance: NIVOLUMAB
     Indication: Colorectal cancer
     Route: 042
     Dates: start: 20220119
  2. CABOZANTINIB [Suspect]
     Active Substance: CABOZANTINIB
     Indication: Colorectal cancer
     Route: 048
     Dates: start: 20220119

REACTIONS (1)
  - Jejunal perforation [Unknown]

NARRATIVE: CASE EVENT DATE: 20220323
